FAERS Safety Report 19349394 (Version 1)
Quarter: 2021Q2

REPORT INFORMATION
  Report Type: Spontaneous
  Country: US (occurrence: US)
  Receive Date: 20210530
  Receipt Date: 20210530
  Transmission Date: 20210717
  Serious: No
  Sender: FDA-Public Use
  Company Number: None

PATIENT
  Age: 67 Year
  Sex: Female
  Weight: 85.5 kg

DRUGS (9)
  1. TRIAMT/HCTZ [Concomitant]
     Active Substance: HYDROCHLOROTHIAZIDE\TRIAMTERENE
  2. VIT D [Concomitant]
     Active Substance: VITAMIN D NOS
  3. PANTOPRAZOLE SODIUM. [Concomitant]
     Active Substance: PANTOPRAZOLE SODIUM
  4. LEVOTHYROXIN [Concomitant]
     Active Substance: LEVOTHYROXINE
  5. CRESTOR [Concomitant]
     Active Substance: ROSUVASTATIN CALCIUM
  6. CHOLESTYRAMINE FOR ORAL SUSPENSION, USP [Suspect]
     Active Substance: CHOLESTYRAMINE
     Indication: PANCREATIC DISORDER
     Dosage: ?          QUANTITY:1 PACKET;?
     Route: 048
     Dates: start: 20210520
  7. SELENIUM [Concomitant]
     Active Substance: SELENIUM
  8. CALCIUM [Concomitant]
     Active Substance: CALCIUM
  9. ASPIRIN. [Concomitant]
     Active Substance: ASPIRIN

REACTIONS (3)
  - Oropharyngeal pain [None]
  - Choking [None]
  - Product quality issue [None]

NARRATIVE: CASE EVENT DATE: 20210520
